FAERS Safety Report 7399261-9 (Version None)
Quarter: 2011Q2

REPORT INFORMATION
  Report Type: 
  Country: None (occurrence: None)
  Receive Date: 20110407
  Receipt Date: 20110330
  Transmission Date: 20111010
  Serious: Yes (Other)
  Sender: FDA-Public Use
  Company Number: FR-KINGPHARMUSA00001-K201100185

PATIENT
  Age: 45 Year
  Sex: Male

DRUGS (3)
  1. TORSEMIDE [Concomitant]
     Dosage: UNK
     Dates: start: 20100101
  2. ALTACE [Suspect]
     Indication: BLOOD PRESSURE ABNORMAL
     Dosage: 5 MG, BID
     Route: 048
     Dates: start: 20090910
  3. AMLODIPINE [Concomitant]

REACTIONS (2)
  - PERIODONTAL DISEASE [None]
  - GINGIVAL HYPERPLASIA [None]
